FAERS Safety Report 10737787 (Version 1)
Quarter: 2015Q1

REPORT INFORMATION
  Report Type: Spontaneous
  Country: US (occurrence: None)
  Receive Date: 20150122
  Receipt Date: 20150122
  Transmission Date: 20150721
  Serious: Yes (Other)
  Sender: FDA-Public Use
  Company Number: 2015AJA00003

PATIENT
  Age: 52 Year
  Sex: Male

DRUGS (8)
  1. PROPOFOL. [Concomitant]
     Active Substance: PROPOFOL
  2. QUETIAPINE [Concomitant]
     Active Substance: QUETIAPINE
  3. FENTANYL. [Concomitant]
     Active Substance: FENTANYL
  4. PANTOPRAZOLE [Concomitant]
     Active Substance: PANTOPRAZOLE SODIUM
  5. LEVETIRACETAM. [Suspect]
     Active Substance: LEVETIRACETAM
     Indication: POST-TRAUMATIC EPILEPSY
     Dosage: 1000 MG; INTRAVENOUS (NOT OTHERWISE SPECIFIED) (LOADING DOSE)
     Route: 042
     Dates: start: 20121016, end: 20121020
  6. ASPIRIN. [Concomitant]
     Active Substance: ASPIRIN
  7. ENOXAPARIN [Concomitant]
     Active Substance: ENOXAPARIN
  8. CEFAZOLIN [Concomitant]
     Active Substance: CEFAZOLIN

REACTIONS (5)
  - Febrile neutropenia [None]
  - Thrombocytopenia [None]
  - Haemoglobin decreased [None]
  - Bone marrow failure [None]
  - Iatrogenic injury [None]

NARRATIVE: CASE EVENT DATE: 201501
